FAERS Safety Report 9690710 (Version 1)
Quarter: 2013Q4

REPORT INFORMATION
  Report Type: Report from Study
  Country: ES (occurrence: ES)
  Receive Date: 20131115
  Receipt Date: 20131115
  Transmission Date: 20140711
  Serious: Yes (Other)
  Sender: FDA-Public Use
  Company Number: ES-VERTEX PHARMACEUTICALS INC-2013-011093

PATIENT
  Age: 45 Year
  Sex: Male

DRUGS (3)
  1. TELAPREVIR [Suspect]
     Indication: HEPATITIS C
     Dosage: UNK
     Dates: start: 20130301, end: 20130330
  2. RIBAVIRIN [Suspect]
     Indication: CHRONIC HEPATITIS C
     Dates: start: 20130301, end: 20130330
  3. PEG INTERFERON [Suspect]
     Indication: CHRONIC HEPATITIS C
     Dates: start: 20130301, end: 20130330

REACTIONS (1)
  - Paranoia [Unknown]
